FAERS Safety Report 7998490-0 (Version None)
Quarter: 2011Q4

REPORT INFORMATION
  Report Type: 
  Country: None (occurrence: None)
  Receive Date: 20111221
  Receipt Date: 20111213
  Transmission Date: 20120403
  Serious: Yes (Hospitalization)
  Sender: FDA-Public Use
  Company Number: FR-BAYER-2011-120329

PATIENT
  Age: 46 Year
  Sex: Female

DRUGS (13)
  1. TERPINE [Concomitant]
  2. EUPATORIUM OLIGOPLEX [Concomitant]
  3. MOXIFLOXACIN HCL [Suspect]
     Dosage: 1 DF, QD
     Route: 048
     Dates: start: 20111020, end: 20111027
  4. MYCOPHENOLATE MOFETIL (CELLCEPT) [Concomitant]
     Dosage: UNK
     Dates: start: 20110913
  5. LEVOMENTHOL [Concomitant]
  6. TIORFAN [Concomitant]
  7. ACTAPULGITE [Concomitant]
  8. TRAMADOL HCL [Concomitant]
  9. ZOPICLONE [Concomitant]
  10. CERTICAN [Suspect]
     Indication: DIARRHOEA
     Dosage: 1 MG, BID
     Route: 048
     Dates: start: 20110913, end: 20111103
  11. IMODIUM [Concomitant]
  12. TPN [Concomitant]
  13. TOPLEXIL [GUAIFENESIN,OXOMEMAZINE] [Concomitant]

REACTIONS (1)
  - PANCREATITIS ACUTE [None]
